FAERS Safety Report 6012968-0 (Version None)
Quarter: 2008Q4

REPORT INFORMATION
  Report Type: 
  Country: None (occurrence: None)
  Receive Date: 20081219
  Receipt Date: 20081117
  Transmission Date: 20090506
  Serious: No
  Sender: FDA-Public Use
  Company Number: US-BAYER-200839352NA

PATIENT
  Age: 21 Year
  Sex: Female
  Weight: 82 kg

DRUGS (2)
  1. OCELLA [Suspect]
     Indication: MENSTRUATION IRREGULAR
     Route: 048
     Dates: start: 20081103
  2. PROVERA [Concomitant]
     Indication: ANOVULATORY CYCLE

REACTIONS (2)
  - METRORRHAGIA [None]
  - NO ADVERSE EVENT [None]
